FAERS Safety Report 10622929 (Version 2)
Quarter: 2014Q4

REPORT INFORMATION
  Report Type: Report from Study
  Country: TW (occurrence: TW)
  Receive Date: 20141203
  Receipt Date: 20141218
  Transmission Date: 20150529
  Serious: Yes (Hospitalization)
  Sender: FDA-Public Use
  Company Number: PHHY2014TW156371

PATIENT
  Age: 68 Year
  Sex: Female
  Weight: 60 kg

DRUGS (8)
  1. FOSAMAX [Concomitant]
     Active Substance: ALENDRONATE SODIUM
     Dosage: 70 MG, QID
     Route: 048
     Dates: start: 20081027, end: 20090119
  2. ACLASTA [Suspect]
     Active Substance: ZOLEDRONIC ACID
     Dosage: 5 MG, UNK
     Route: 041
     Dates: start: 20140604, end: 20140604
  3. FOSAMAX [Concomitant]
     Active Substance: ALENDRONATE SODIUM
     Dosage: 70 MG, QID
     Route: 048
     Dates: start: 20090223, end: 20090518
  4. FOSAMAX [Concomitant]
     Active Substance: ALENDRONATE SODIUM
     Dosage: 70 MG, QID
     Route: 048
     Dates: start: 20091027, end: 20100119
  5. ACLASTA [Suspect]
     Active Substance: ZOLEDRONIC ACID
     Dosage: 5 MG, UNK
     Route: 041
     Dates: start: 20130605
  6. FOSAMAX [Concomitant]
     Active Substance: ALENDRONATE SODIUM
     Indication: OSTEOPOROSIS
     Dosage: 70 MG, QID
     Route: 048
     Dates: start: 20080708, end: 20081001
  7. FOSAMAX [Concomitant]
     Active Substance: ALENDRONATE SODIUM
     Dosage: 70 MG, QID
     Route: 048
     Dates: start: 20090702, end: 20090924
  8. ACLASTA [Suspect]
     Active Substance: ZOLEDRONIC ACID
     Indication: OSTEOPOROSIS
     Dosage: 5 MG, UNK
     Route: 041
     Dates: start: 20120606

REACTIONS (2)
  - Osteonecrosis of jaw [Recovered/Resolved]
  - Oral pain [Unknown]

NARRATIVE: CASE EVENT DATE: 20140918
